FAERS Safety Report 7132659-2 (Version None)
Quarter: 2010Q4

REPORT INFORMATION
  Report Type: 
  Country: None (occurrence: None)
  Receive Date: 20101202
  Receipt Date: 20101123
  Transmission Date: 20110411
  Serious: Yes (Other)
  Sender: FDA-Public Use
  Company Number: GB-JNJFOC-20101101841

PATIENT
  Age: 40 Year
  Sex: Male

DRUGS (9)
  1. TOPIRAMATE [Suspect]
     Indication: EPILEPSY
     Route: 048
  2. TOPIRAMATE [Suspect]
     Dosage: AT NIGHT
     Route: 048
  3. TOPIRAMATE [Suspect]
     Dosage: 1 X 50 MG MORNING AND 2 X 100 MG NIGHT
     Route: 048
  4. TOPIRAMATE [Suspect]
     Route: 048
  5. AMOXICILLIN [Concomitant]
     Indication: ILL-DEFINED DISORDER
     Route: 065
  6. CITALOPRAM [Concomitant]
     Indication: DEPRESSION
  7. INFLUENZA [Concomitant]
     Indication: ILL-DEFINED DISORDER
     Route: 065
  8. LAMOTRIGINE [Concomitant]
     Indication: ILL-DEFINED DISORDER
     Route: 065
  9. SOFRAMYCIN EAR [Concomitant]
     Indication: CHOLESTEATOMA
     Route: 065

REACTIONS (3)
  - DRUG DISPENSING ERROR [None]
  - EPILEPSY [None]
  - INCORRECT DOSE ADMINISTERED [None]
